FAERS Safety Report 11814645 (Version 2)
Quarter: 2015Q4

REPORT INFORMATION
  Report Type: Spontaneous
  Country: US (occurrence: US)
  Receive Date: 20151209
  Receipt Date: 20151217
  Transmission Date: 20160305
  Serious: Yes (Other)
  Sender: FDA-Public Use
  Company Number: US-DEP_13157_2015

PATIENT
  Age: 50 Year
  Sex: Male
  Weight: 145 kg

DRUGS (15)
  1. INSULIN [Concomitant]
     Active Substance: INSULIN NOS
     Indication: DIABETES MELLITUS
  2. HYDROCODONE [Suspect]
     Active Substance: HYDROCODONE
     Dosage: ONE HALF 10/325 MG TABLET, EVERY 4-6 HOURS AS NEEDED
     Route: 048
     Dates: start: 201512
  3. TEGRETOL [Suspect]
     Active Substance: CARBAMAZEPINE
     Indication: PAIN
     Route: 048
     Dates: start: 20151203, end: 20151204
  4. HYDROCODONE [Suspect]
     Active Substance: HYDROCODONE
     Indication: PAIN
     Route: 048
  5. HYDROCODONE [Suspect]
     Active Substance: HYDROCODONE
     Route: 048
  6. NUCYNTA ER [Suspect]
     Active Substance: TAPENTADOL HYDROCHLORIDE
     Indication: DIABETIC NEUROPATHY
     Route: 048
     Dates: start: 2013
  7. WELLBUTRIN [Concomitant]
     Active Substance: BUPROPION HYDROCHLORIDE
     Dosage: DF
  8. VYVANSE [Concomitant]
     Active Substance: LISDEXAMFETAMINE DIMESYLATE
     Dosage: DF
  9. HYDROCODONE [Suspect]
     Active Substance: HYDROCODONE
     Dosage: 10/325 MG, ONCE
     Route: 048
     Dates: start: 20151205, end: 20151205
  10. HYDROCODONE [Suspect]
     Active Substance: HYDROCODONE
     Dosage: 5/325 MG, ONE TABLET EVERY 4-6 HOURS AS NEEDED
     Route: 048
     Dates: start: 2015, end: 2015
  11. ANTIDEPRESSANTS [Concomitant]
     Active Substance: UNSPECIFIED INGREDIENT
     Dosage: DF
  12. DILAUDID [Suspect]
     Active Substance: HYDROMORPHONE HYDROCHLORIDE
     Indication: PAIN IN EXTREMITY
     Dosage: ONCE
     Route: 042
     Dates: start: 201511, end: 201511
  13. TYLENOL WITH CODEINE [Concomitant]
     Active Substance: ACETAMINOPHEN\CODEINE PHOSPHATE
     Indication: BREAKTHROUGH PAIN
     Dosage: PRN
     Route: 048
  14. VIIBRYD [Concomitant]
     Active Substance: VILAZODONE HYDROCHLORIDE
     Indication: ATTENTION DEFICIT/HYPERACTIVITY DISORDER
     Dosage: 70MG IN THE MORNING, 40MG IN THE AFTERNOON
     Route: 048
  15. VIIBRYD [Concomitant]
     Active Substance: VILAZODONE HYDROCHLORIDE
     Indication: OBSESSIVE-COMPULSIVE DISORDER
     Dosage: 70MG IN THE MORNING, 40MG IN THE AFTERNOON
     Route: 048

REACTIONS (10)
  - Memory impairment [Unknown]
  - Insomnia [Not Recovered/Not Resolved]
  - Pain in extremity [Not Recovered/Not Resolved]
  - Activities of daily living impaired [Unknown]
  - Loss of control of legs [Unknown]
  - Mental impairment [Unknown]
  - Fall [Recovered/Resolved]
  - Road traffic accident [Recovered/Resolved]
  - Impaired driving ability [Recovered/Resolved]
  - Pain [Not Recovered/Not Resolved]

NARRATIVE: CASE EVENT DATE: 201511
